FAERS Safety Report 8966720 (Version 3)
Quarter: 2013Q2

REPORT INFORMATION
  Report Type: Spontaneous
  Country: DE (occurrence: DE)
  Receive Date: 20121217
  Receipt Date: 20130506
  Transmission Date: 20140414
  Serious: Yes (Hospitalization)
  Sender: FDA-Public Use
  Company Number: DE-JNJFOC-20121205634

PATIENT
  Sex: Male
  Weight: 78 kg

DRUGS (1)
  1. XARELTO [Suspect]
     Indication: PROMOTION OF PERIPHERAL CIRCULATION
     Route: 048

REACTIONS (1)
  - Cerebrovascular accident [Unknown]
